FAERS Safety Report 10396236 (Version 1)
Quarter: 2014Q1

REPORT INFORMATION
  Report Type: Spontaneous
  Country: US (occurrence: None)
  Receive Date: 20130124
  Receipt Date: 20130124
  Transmission Date: 20141002
  Serious: Yes (Hospitalization)
  Sender: FDA-Public Use
  Company Number: 2012PROUSA01553

PATIENT
  Age: 86 Year
  Sex: Male
  Weight: 75.7 kg

DRUGS (3)
  1. PROVENGE (SIPULEUCEL-T) SUSPENSION, 250ML [Suspect]
     Indication: PROSTATE CANCER METASTATIC
     Route: 042
     Dates: start: 20120607, end: 20120607
  2. TRELSTER (TRIPTORELIN EMBONATE) [Concomitant]
  3. ZOMETA (ZOLEDRONIC ACID) [Concomitant]

REACTIONS (3)
  - Device related infection [None]
  - Hypotension [None]
  - Heart rate irregular [None]
